FAERS Safety Report 20361321 (Version 1)
Quarter: 2022Q1

REPORT INFORMATION
  Report Type: Spontaneous
  Country: US (occurrence: US)
  Receive Date: 20220121
  Receipt Date: 20220121
  Transmission Date: 20220423
  Serious: No
  Sender: FDA-Public Use
  Company Number: US-BAYER-2022A011832

PATIENT
  Age: 38 Year
  Sex: Male

DRUGS (3)
  1. KOGENATE FS [Suspect]
     Active Substance: ANTIHEMOPHILIC FACTOR, HUMAN RECOMBINANT
     Dosage: 3400 IU
  2. KOGENATE FS [Suspect]
     Active Substance: ANTIHEMOPHILIC FACTOR, HUMAN RECOMBINANT
     Dosage: 1 DF, FOR THE INJURY OF RIGHT ANKLE TREATMENT
     Dates: start: 20220113, end: 20220113
  3. KOGENATE FS [Suspect]
     Active Substance: ANTIHEMOPHILIC FACTOR, HUMAN RECOMBINANT
     Dosage: 1 DF, FOR THE INJURY OF RIGHT ANKLE TREATMENT
     Dates: start: 20220114, end: 20220114

REACTIONS (1)
  - Joint injury [Not Recovered/Not Resolved]

NARRATIVE: CASE EVENT DATE: 20220112
